FAERS Safety Report 8814159 (Version 1)
Quarter: 2012Q4

REPORT INFORMATION
  Report Type: 
  Country: US (occurrence: US)
  Receive Date: 20120928
  Receipt Date: 20120928
  Transmission Date: 20130627
  Serious: Yes (Disabling, Other)
  Sender: FDA-Public Use
  Company Number: US-009507513-2012SP023480

PATIENT
  Age: 52 Year
  Sex: Male

DRUGS (3)
  1. PEG-INTRON [Suspect]
     Indication: HEPATITIS C
     Dosage: UNK UNK, Unknown
     Route: 058
     Dates: start: 20120406, end: 20120914
  2. REBETOL [Suspect]
     Indication: HEPATITIS C
     Dosage: UNK UNK, Unknown
     Route: 048
     Dates: start: 20120406, end: 20120921
  3. TELAPREVIR [Suspect]
     Indication: HEPATITIS C
     Dosage: UNK
     Dates: start: 20120406, end: 20120629

REACTIONS (35)
  - Back pain [Unknown]
  - Substance use [Unknown]
  - Pancreatitis [Unknown]
  - Back pain [Not Recovered/Not Resolved]
  - Eye inflammation [Unknown]
  - Pain [Unknown]
  - Musculoskeletal chest pain [Unknown]
  - Pain in extremity [Unknown]
  - Abnormal dreams [Unknown]
  - Pollakiuria [Unknown]
  - Feeling abnormal [Unknown]
  - Dysgeusia [Unknown]
  - Hepatic enzyme increased [Unknown]
  - Foreign body sensation in eyes [Unknown]
  - Blood glucose increased [Unknown]
  - Burning sensation [Unknown]
  - Influenza [Unknown]
  - Chills [Unknown]
  - Fatigue [Unknown]
  - Asthenia [Unknown]
  - Weight decreased [Unknown]
  - Injection site reaction [Unknown]
  - Vomiting [Unknown]
  - Decreased appetite [Unknown]
  - Nausea [Unknown]
  - Rash erythematous [Unknown]
  - Malaise [Unknown]
  - Pruritus [Recovered/Resolved]
  - Sleep disorder [Unknown]
  - Myalgia [Unknown]
  - Burning sensation [Unknown]
  - Night sweats [Unknown]
  - Feeling hot [Unknown]
  - Dry mouth [Unknown]
  - Fatigue [Unknown]
